FAERS Safety Report 19914691 (Version 1)
Quarter: 2021Q4

REPORT INFORMATION
  Report Type: Spontaneous
  Country: US (occurrence: US)
  Receive Date: 20211004
  Receipt Date: 20211004
  Transmission Date: 20220303
  Serious: No
  Sender: FDA-Public Use
  Company Number: US-MMM-R14C3ON8

PATIENT
  Sex: Female

DRUGS (2)
  1. ARIPIPRAZOLE [Suspect]
     Active Substance: ARIPIPRAZOLE
     Indication: Bipolar disorder
     Dosage: 30MG
     Route: 065
     Dates: end: 201911
  2. ARIPIPRAZOLE [Suspect]
     Active Substance: ARIPIPRAZOLE
     Indication: Bipolar I disorder
     Dosage: 5MG
     Route: 065
     Dates: start: 2019

REACTIONS (7)
  - Adverse drug reaction [Recovered/Resolved]
  - Muscle disorder [Recovered/Resolved]
  - Limb deformity [Recovered/Resolved]
  - Foot deformity [Recovered/Resolved]
  - Sensory disturbance [Recovered/Resolved]
  - Drug hypersensitivity [Recovered/Resolved]
  - Muscle rigidity [Recovered/Resolved]

NARRATIVE: CASE EVENT DATE: 20190101
